FAERS Safety Report 16037776 (Version 2)
Quarter: 2019Q4

REPORT INFORMATION
  Report Type: Spontaneous
  Country: US (occurrence: US)
  Receive Date: 20190305
  Receipt Date: 20191016
  Transmission Date: 20200122
  Serious: Yes (Other)
  Sender: FDA-Public Use
  Company Number: US-ELI_LILLY_AND_COMPANY-US201902014248

PATIENT
  Sex: Male

DRUGS (7)
  1. FLOMAX TAMSULOSIN HYDROCHLORIDE [Concomitant]
     Dosage: 0.4 MG, DAILY
     Route: 048
     Dates: start: 20150210, end: 20151016
  2. NAPROXEN. [Concomitant]
     Active Substance: NAPROXEN
     Indication: PAIN
     Dosage: UNK
     Dates: start: 20130723, end: 20151007
  3. METHOCARBAMOL. [Concomitant]
     Active Substance: METHOCARBAMOL
     Indication: MUSCLE SPASMS
     Dosage: UNK
     Dates: start: 20131223, end: 20150621
  4. FLOMAX TAMSULOSIN HYDROCHLORIDE [Concomitant]
     Indication: BENIGN PROSTATIC HYPERPLASIA
     Dosage: 0.4 MG, DAILY
     Route: 048
     Dates: start: 20130408, end: 20141108
  5. CIALIS [Suspect]
     Active Substance: TADALAFIL
     Indication: ERECTILE DYSFUNCTION
     Dosage: 5 MG, DAILY
     Route: 048
     Dates: start: 20130408, end: 20140725
  6. CIALIS [Suspect]
     Active Substance: TADALAFIL
     Dosage: 5 MG, WEEKLY (1/W)
     Route: 048
     Dates: start: 20150216, end: 20151008
  7. FLOMAX TAMSULOSIN HYDROCHLORIDE [Concomitant]
     Dosage: 0.4 MG, DAILY
     Route: 048
     Dates: start: 2016

REACTIONS (1)
  - Malignant melanoma [Unknown]

NARRATIVE: CASE EVENT DATE: 20150316
